FAERS Safety Report 5565457-1 (Version None)
Quarter: 2007Q4

REPORT INFORMATION
  Report Type: 
  Country: None (occurrence: None)
  Receive Date: 20071218
  Receipt Date: 20071206
  Transmission Date: 20080405
  Serious: Yes (Other)
  Sender: FDA-Public Use
  Company Number: FR-PFIZER INC-2007095100

PATIENT
  Sex: Female
  Weight: 60 kg

DRUGS (3)
  1. DOSTINEX [Suspect]
     Indication: HYPERPROLACTINAEMIA
     Route: 048
     Dates: start: 20071001, end: 20071115
  2. ESTRADIOL HEMIHYDRATE [Concomitant]
     Route: 048
  3. CYPROTERONE ACETATE [Concomitant]
     Route: 048

REACTIONS (4)
  - ALOPECIA [None]
  - HYPERANDROGENISM [None]
  - HYPERTRICHOSIS [None]
  - VIRILISM [None]
